FAERS Safety Report 6302079-9 (Version None)
Quarter: 2009Q3

REPORT INFORMATION
  Report Type: 
  Country: None (occurrence: None)
  Receive Date: 20090807
  Receipt Date: 20090803
  Transmission Date: 20100115
  Serious: Yes (Other)
  Sender: FDA-Public Use
  Company Number: US-ELI_LILLY_AND_COMPANY-US200908000328

PATIENT
  Sex: Male

DRUGS (2)
  1. HUMALOG [Suspect]
     Dosage: 35 U, UNK
     Dates: start: 20090301, end: 20090301
  2. LANTUS [Concomitant]
     Indication: TYPE 2 DIABETES MELLITUS
     Dosage: 20 U, 2/D
     Dates: start: 19990101

REACTIONS (4)
  - AMNESIA [None]
  - HYPOGLYCAEMIC UNCONSCIOUSNESS [None]
  - SKIN LACERATION [None]
  - WRONG DRUG ADMINISTERED [None]
